FAERS Safety Report 22214398 (Version 1)
Quarter: 2023Q2

REPORT INFORMATION
  Report Type: Spontaneous
  Country: US (occurrence: US)
  Receive Date: 20230414
  Receipt Date: 20230414
  Transmission Date: 20230721
  Serious: Yes (Other)
  Sender: FDA-Public Use
  Company Number: US-TEVA-2023-US-2878247

PATIENT
  Age: 21 Year
  Sex: Female

DRUGS (1)
  1. LUPRON DEPOT [Suspect]
     Active Substance: LEUPROLIDE ACETATE
     Indication: Endometriosis
     Route: 065

REACTIONS (17)
  - Near death experience [Unknown]
  - Pancreatic disorder [Unknown]
  - Hypothalamo-pituitary disorder [Unknown]
  - Hypothalamo-pituitary disorder [Unknown]
  - Loss of consciousness [Unknown]
  - Adrenal disorder [Unknown]
  - Jaundice [Unknown]
  - Illness [Unknown]
  - Dyspepsia [Unknown]
  - Headache [Unknown]
  - Adverse event [Unknown]
  - Mental disorder [Unknown]
  - Aggression [Unknown]
  - Hormone level abnormal [Unknown]
  - Affect lability [Unknown]
  - Bedridden [Unknown]
  - Poor quality product administered [Unknown]
